FAERS Safety Report 5688717-2 (Version None)
Quarter: 2008Q1

REPORT INFORMATION
  Report Type: 
  Country: None (occurrence: None)
  Receive Date: 20080331
  Receipt Date: 20080320
  Transmission Date: 20080703
  Serious: Yes (Hospitalization, Other)
  Sender: FDA-Public Use
  Company Number: US-MERCK-0706USA00444

PATIENT
  Age: 76 Year
  Sex: Female

DRUGS (4)
  1. FOSAMAX [Suspect]
     Indication: OSTEOPOROSIS PROPHYLAXIS
     Route: 048
     Dates: start: 20030307, end: 20050101
  2. FOSAMAX [Suspect]
     Route: 048
     Dates: start: 20020606
  3. NORVASC [Concomitant]
     Indication: BLOOD PRESSURE ABNORMAL
     Route: 065
  4. TARKA [Concomitant]
     Indication: BLOOD PRESSURE ABNORMAL
     Route: 065

REACTIONS (25)
  - ANXIETY [None]
  - BENIGN NEOPLASM OF THYROID GLAND [None]
  - BRONCHITIS [None]
  - CHEST INJURY [None]
  - CHRONIC OBSTRUCTIVE PULMONARY DISEASE [None]
  - DEPRESSION [None]
  - DIVERTICULUM [None]
  - EMPHYSEMA [None]
  - GINGIVITIS [None]
  - HEAD INJURY [None]
  - HYPOKALAEMIA [None]
  - INFLAMMATION [None]
  - MITRAL VALVE PROLAPSE [None]
  - ORAL HERPES [None]
  - ORAL TORUS [None]
  - POLYP [None]
  - ROAD TRAFFIC ACCIDENT [None]
  - ROTATOR CUFF SYNDROME [None]
  - SINUSITIS [None]
  - SMALL CELL LUNG CANCER STAGE UNSPECIFIED [None]
  - TEMPOROMANDIBULAR JOINT SYNDROME [None]
  - TOOTH DISORDER [None]
  - ULNA FRACTURE [None]
  - UPPER RESPIRATORY TRACT INFECTION [None]
  - VOCAL CORD PARALYSIS [None]
